FAERS Safety Report 4321668-4 (Version None)
Quarter: 2004Q1

REPORT INFORMATION
  Report Type: 
  Country: None (occurrence: None)
  Receive Date: 20040322
  Receipt Date: 20040322
  Transmission Date: 20041129
  Serious: Yes (Hospitalization)
  Sender: FDA-Public Use
  Company Number: None

PATIENT
  Age: 12 Year
  Sex: Male
  Weight: 58.7 kg

DRUGS (2)
  1. METHOTREXATE [Suspect]
     Indication: ACUTE LYMPHOCYTIC LEUKAEMIA
     Dosage: 12 MG ONCE IT
     Route: 037
     Dates: start: 20040308
  2. METHOTREXATE [Suspect]
     Indication: DISEASE RECURRENCE
     Dosage: 12 MG ONCE IT
     Route: 037
     Dates: start: 20040308

REACTIONS (8)
  - APHASIA [None]
  - DROOLING [None]
  - DRUG TOXICITY [None]
  - DYSARTHRIA [None]
  - HEMIPARESIS [None]
  - NEUROTOXICITY [None]
  - PYREXIA [None]
  - TRANSIENT ISCHAEMIC ATTACK [None]
